FAERS Safety Report 22241853 (Version 1)
Quarter: 2023Q2

REPORT INFORMATION
  Report Type: Report from Study
  Country: US (occurrence: US)
  Receive Date: 20230421
  Receipt Date: 20230421
  Transmission Date: 20230722
  Serious: No
  Sender: FDA-Public Use
  Company Number: US-002147023-NVSC2023US089790

PATIENT
  Sex: Male

DRUGS (5)
  1. COSENTYX [Suspect]
     Active Substance: SECUKINUMAB
     Indication: Psoriasis
     Dosage: UNK
     Route: 058
  2. BUDESONIDE [Suspect]
     Active Substance: BUDESONIDE
     Indication: Psoriasis
     Dosage: 0.25 MG
  3. ALBUTEROL [Suspect]
     Active Substance: ALBUTEROL
     Indication: Psoriasis
     Dosage: UNK
     Route: 065
  4. TIZANIDINE [Suspect]
     Active Substance: TIZANIDINE
     Indication: Psoriasis
     Dosage: 2 MG
     Route: 048
  5. TREMFYA [Suspect]
     Active Substance: GUSELKUMAB
     Indication: Product used for unknown indication
     Dosage: UNK
     Route: 065

REACTIONS (3)
  - COVID-19 [Unknown]
  - Illness [Unknown]
  - Drug ineffective [Unknown]
